FAERS Safety Report 9952421 (Version 2)
Quarter: 2014Q1

REPORT INFORMATION
  Report Type: Spontaneous
  Country: US (occurrence: US)
  Receive Date: 20140304
  Receipt Date: 20140304
  Transmission Date: 20141002
  Serious: No
  Sender: FDA-Public Use
  Company Number: US-AMGEN-USASP2013078157

PATIENT
  Age: 55 Year
  Sex: Male

DRUGS (6)
  1. ENBREL [Suspect]
     Indication: PRODUCT USED FOR UNKNOWN INDICATION
     Dosage: 50 MG, QWK
     Route: 058
     Dates: start: 20111118, end: 20131104
  2. OMEPRAZOLE [Concomitant]
     Dosage: UNK
     Route: 048
  3. ASA [Concomitant]
     Dosage: UNK
     Route: 048
  4. LOSARTAN [Concomitant]
     Dosage: UNK
     Route: 048
  5. METFORMIN [Concomitant]
     Dosage: UNK
     Route: 048
  6. LOPID [Concomitant]
     Dosage: UNK
     Route: 048

REACTIONS (1)
  - Mycobacterium tuberculosis complex test positive [Recovering/Resolving]
